FAERS Safety Report 4289889-7 (Version None)
Quarter: 2004Q1

REPORT INFORMATION
  Report Type: 
  Country: None (occurrence: None)
  Receive Date: 20040209
  Receipt Date: 20040114
  Transmission Date: 20041129
  Serious: Yes (Death, Hospitalization)
  Sender: FDA-Public Use
  Company Number: A01200400151

PATIENT
  Age: 82 Year
  Sex: Male

DRUGS (3)
  1. PLAVIX [Suspect]
     Indication: ANGINA UNSTABLE
     Dosage: 75 MG OD
     Route: 048
     Dates: start: 20030927, end: 20031007
  2. ACETYLSALICYLIC ACID SRT [Suspect]
     Indication: ACUTE MYOCARDIAL INFARCTION
     Dosage: 160 MG QD
     Route: 048
     Dates: start: 20030927, end: 20031007
  3. ENOXAPARIN SODIUM [Suspect]
     Indication: ANGINA UNSTABLE
     Dates: end: 20031007

REACTIONS (4)
  - ABDOMINAL HAEMATOMA [None]
  - ANAEMIA [None]
  - MYOCARDIAL INFARCTION [None]
  - RENAL FAILURE [None]
